FAERS Safety Report 10524482 (Version 7)
Quarter: 2015Q2

REPORT INFORMATION
  Report Type: Spontaneous
  Country: US (occurrence: None)
  Receive Date: 20141015
  Receipt Date: 20150501
  Transmission Date: 20150821
  Serious: Yes (Other)
  Sender: FDA-Public Use
  Company Number: ADR-2014-01883

PATIENT
  Age: 54 Year
  Sex: Female

DRUGS (4)
  1. BUPIVACAINE 30.0 MG/ML [Suspect]
     Active Substance: BUPIVACAINE
  2. DILAUDID [Suspect]
     Active Substance: HYDROMORPHONE HYDROCHLORIDE
     Indication: PAIN
  3. CLONIDINE. [Suspect]
     Active Substance: CLONIDINE
  4. COMPOUNDED BACLOFEN INTRATHECAL [Suspect]
     Active Substance: BACLOFEN
     Indication: CANCER PAIN
     Dosage: ??

REACTIONS (1)
  - Hypoaesthesia [None]
